FAERS Safety Report 15496183 (Version 1)
Quarter: 2018Q4

REPORT INFORMATION
  Report Type: Spontaneous
  Country: SE (occurrence: SE)
  Receive Date: 20181012
  Receipt Date: 20181012
  Transmission Date: 20190205
  Serious: Yes (Other)
  Sender: FDA-Public Use
  Company Number: SE-PFIZER INC-2018407780

PATIENT
  Sex: Male

DRUGS (3)
  1. LYRICA [Suspect]
     Active Substance: PREGABALIN
     Indication: MENTAL DISORDER
     Dosage: 300 MG, 2X/DAY
     Route: 064
  2. LYRICA [Suspect]
     Active Substance: PREGABALIN
     Dosage: 300 MG, 2X/DAY (DOSE INCREASED TO 300 MGX2 SOME TIME IN AUGUST)
     Route: 063
     Dates: start: 201808
  3. LYRICA [Suspect]
     Active Substance: PREGABALIN
     Dosage: 150 MG, 2X/DAY  (PRESCRIBED 300 MGX2 BUT IN THE END OF THE PREGNANCY TAPERED DOWN TO 150 MGX2)
     Route: 064
     Dates: end: 201808

REACTIONS (5)
  - Premature baby [Unknown]
  - Blood test abnormal [Unknown]
  - Foetal exposure during pregnancy [Recovered/Resolved]
  - Exposure via breast milk [Unknown]
  - Drug withdrawal syndrome neonatal [Recovered/Resolved]

NARRATIVE: CASE EVENT DATE: 2018
